FAERS Safety Report 15623232 (Version 3)
Quarter: 2018Q4

REPORT INFORMATION
  Report Type: Spontaneous
  Country: JP (occurrence: JP)
  Receive Date: 20181115
  Receipt Date: 20181219
  Transmission Date: 20190205
  Serious: Yes (Hospitalization, Other)
  Sender: FDA-Public Use
  Company Number: JP-ELI_LILLY_AND_COMPANY-JP201811005212

PATIENT
  Age: 71 Year
  Sex: Male

DRUGS (4)
  1. ERBITUX [Suspect]
     Active Substance: CETUXIMAB
     Dosage: 250 MG/M2, WEEKLY (1/W)
     Route: 041
  2. PARAPLATIN [Suspect]
     Active Substance: CARBOPLATIN
     Indication: TONGUE CANCER METASTATIC
     Dosage: 340 MG, OTHER
     Route: 041
     Dates: start: 20181025
  3. ERBITUX [Suspect]
     Active Substance: CETUXIMAB
     Indication: TONGUE CANCER METASTATIC
     Dosage: 400 MG/M2, UNKNOWN
     Route: 041
     Dates: start: 20180806, end: 20180806
  4. PACLITAXEL. [Suspect]
     Active Substance: PACLITAXEL
     Indication: TONGUE CANCER METASTATIC
     Dosage: 340 MG, OTHER
     Route: 041
     Dates: start: 20181025

REACTIONS (4)
  - Hypomagnesaemia [Not Recovered/Not Resolved]
  - Pyrexia [Recovered/Resolved]
  - Bone marrow failure [Recovered/Resolved]
  - Neutrophil count decreased [Recovered/Resolved]

NARRATIVE: CASE EVENT DATE: 20181102
